FAERS Safety Report 8493373-4 (Version None)
Quarter: 2012Q3

REPORT INFORMATION
  Report Type: 
  Country: None (occurrence: None)
  Receive Date: 20120706
  Receipt Date: 20120629
  Transmission Date: 20120928
  Serious: Yes (Other)
  Sender: FDA-Public Use
  Company Number: GB-EISAI INC-E3810-05003-SPO-GB

PATIENT
  Age: 70 Year
  Sex: Female
  Weight: 62 kg

DRUGS (7)
  1. RABEPRAZOLE SODIUM [Suspect]
     Dosage: UNKNOWN
     Route: 048
     Dates: start: 20101001, end: 20110901
  2. AVEENO [Concomitant]
     Dates: start: 20110909
  3. AVEENO [Concomitant]
     Dates: start: 20110622, end: 20110720
  4. GAVISCON [Concomitant]
     Dates: start: 20110909
  5. RABEPRAZOLE SODIUM [Suspect]
     Dosage: UNKNOWN
     Route: 048
     Dates: start: 20100501
  6. AMITRIPTYLINE HCL [Concomitant]
     Dates: start: 20110622, end: 20110720
  7. GAVISCON [Concomitant]
     Dates: start: 20110630, end: 20110819

REACTIONS (3)
  - DRY MOUTH [None]
  - SALIVARY GLAND CALCULUS [None]
  - SWOLLEN TONGUE [None]
